FAERS Safety Report 11446340 (Version 1)
Quarter: 2015Q3

REPORT INFORMATION
  Report Type: Spontaneous
  Country: US (occurrence: US)
  Receive Date: 20150831
  Receipt Date: 20150831
  Transmission Date: 20151125
  Serious: No
  Sender: FDA-Public Use
  Company Number: US-ELI_LILLY_AND_COMPANY-US200811002329

PATIENT
  Age: 45 Year
  Sex: Female
  Weight: 78.46 kg

DRUGS (12)
  1. XANAX [Concomitant]
     Active Substance: ALPRAZOLAM
     Indication: ANXIETY
     Dosage: 1 MG, UNK
     Dates: start: 20070926
  2. TOPAMAX [Concomitant]
     Active Substance: TOPIRAMATE
  3. THEO-24 [Concomitant]
     Active Substance: THEOPHYLLINE ANHYDROUS
  4. VENTOLIN [Concomitant]
     Active Substance: ALBUTEROL SULFATE
  5. CYMBALTA [Suspect]
     Active Substance: DULOXETINE HYDROCHLORIDE
     Dosage: 30 MG, UNK
     Dates: start: 20081020
  6. PREVACID [Concomitant]
     Active Substance: LANSOPRAZOLE
     Dosage: 1 D/F, DAILY (1/D)
  7. MICRO K [Concomitant]
     Indication: BLOOD POTASSIUM
     Dosage: UNK, DAILY (1/D)
  8. CYMBALTA [Suspect]
     Active Substance: DULOXETINE HYDROCHLORIDE
     Dosage: 90 MG, UNK
     Dates: start: 200711
  9. ULTRACET [Concomitant]
     Active Substance: ACETAMINOPHEN\TRAMADOL HYDROCHLORIDE
  10. CYMBALTA [Suspect]
     Active Substance: DULOXETINE HYDROCHLORIDE
     Indication: BIPOLAR DISORDER
     Dosage: 60 MG, DAILY (1/D)
     Dates: start: 200701, end: 200711
  11. CYMBALTA [Suspect]
     Active Substance: DULOXETINE HYDROCHLORIDE
     Dosage: 60 MG, DAILY (1/D)
     Dates: start: 20080720, end: 20081006
  12. BUMEX [Concomitant]
     Active Substance: BUMETANIDE
     Dosage: UNK, 3/D

REACTIONS (5)
  - Back pain [Unknown]
  - Dizziness [Recovered/Resolved]
  - Depression [Recovered/Resolved]
  - Suicidal ideation [Recovered/Resolved]
  - Panic attack [Recovered/Resolved]

NARRATIVE: CASE EVENT DATE: 200711
